FAERS Safety Report 17399295 (Version 2)
Quarter: 2020Q1

REPORT INFORMATION
  Report Type: Report from Study
  Country: BR (occurrence: BR)
  Receive Date: 20200211
  Receipt Date: 20200227
  Transmission Date: 20200409
  Serious: No
  Sender: FDA-Public Use
  Company Number: BR-EMD SERONO-9128015

PATIENT
  Sex: Female

DRUGS (2)
  1. BIO-MANGUINHOS BETAINTERFERONA 1A 44 MCG [Suspect]
     Active Substance: INTERFERON BETA-1A
     Indication: MULTIPLE SCLEROSIS
     Route: 058
     Dates: start: 20190819
  2. REBIF [Suspect]
     Active Substance: INTERFERON BETA-1A
     Indication: MULTIPLE SCLEROSIS
     Dates: start: 2017

REACTIONS (9)
  - Pain in extremity [Recovering/Resolving]
  - Injection site bruising [Recovering/Resolving]
  - Headache [Recovering/Resolving]
  - Vision blurred [Recovering/Resolving]
  - Pyrexia [Recovering/Resolving]
  - Dizziness [Recovering/Resolving]
  - Somnolence [Recovered/Resolved]
  - Insomnia [Recovering/Resolving]
  - Fatigue [Recovered/Resolved]
